FAERS Safety Report 12386330 (Version 1)
Quarter: 2016Q2

REPORT INFORMATION
  Report Type: Spontaneous
  Country: US (occurrence: US)
  Receive Date: 20160519
  Receipt Date: 20160519
  Transmission Date: 20160815
  Serious: No
  Sender: FDA-Public Use
  Company Number: US-MDT-ADR-2016-00433

PATIENT
  Age: 66 Year
  Sex: Female

DRUGS (3)
  1. BACLOFEN. [Suspect]
     Active Substance: BACLOFEN
     Route: 037
  2. HYDROMORPHONE [Suspect]
     Active Substance: HYDROMORPHONE
     Route: 037
  3. PRIALT [Suspect]
     Active Substance: ZICONOTIDE ACETATE
     Route: 037

REACTIONS (2)
  - Pain [Unknown]
  - No therapeutic response [Unknown]

NARRATIVE: CASE EVENT DATE: 20131113
